FAERS Safety Report 6153412-2 (Version None)
Quarter: 2009Q2

REPORT INFORMATION
  Report Type: 
  Country: None (occurrence: None)
  Receive Date: 20090409
  Receipt Date: 20090409
  Transmission Date: 20091009
  Serious: Yes (Hospitalization)
  Sender: FDA-Public Use
  Company Number: None

PATIENT
  Age: 70 Year
  Sex: Male
  Weight: 77.1115 kg

DRUGS (5)
  1. CLOFARABINE [Suspect]
     Indication: NON-HODGKIN'S LYMPHOMA RECURRENT
     Dosage: 4 MG/M2 IV DAYS 1-5 Q 28 DAYS
     Route: 042
     Dates: start: 20090323, end: 20090327
  2. LEVAQUIN [Concomitant]
  3. COREG [Concomitant]
  4. NIACIN [Concomitant]
  5. LACTULOSE [Concomitant]

REACTIONS (2)
  - BLOOD CULTURE POSITIVE [None]
  - FEBRILE NEUTROPENIA [None]
